FAERS Safety Report 5748263-4 (Version None)
Quarter: 2008Q2

REPORT INFORMATION
  Report Type: 
  Country: None (occurrence: None)
  Receive Date: 20080523
  Receipt Date: 20080514
  Transmission Date: 20081010
  Serious: Yes (Disabling, Other)
  Sender: FDA-Public Use
  Company Number: GB-PFIZER INC-2007063787

PATIENT
  Sex: Male

DRUGS (3)
  1. VFEND [Suspect]
     Indication: PULMONARY MYCOSIS
     Route: 048
     Dates: start: 20070101, end: 20070823
  2. COTRIM [Concomitant]
     Route: 048
  3. ACYCLOVIR [Concomitant]
     Route: 048

REACTIONS (4)
  - BIOPSY SKIN ABNORMAL [None]
  - EPHELIDES [None]
  - PHOTOSENSITIVITY REACTION [None]
  - SUNBURN [None]
